FAERS Safety Report 5643536-8 (Version None)
Quarter: 2008Q1

REPORT INFORMATION
  Report Type: 
  Country: None (occurrence: None)
  Receive Date: 20080228
  Receipt Date: 20080226
  Transmission Date: 20080703
  Serious: Yes (Hospitalization, Other)
  Sender: FDA-Public Use
  Company Number: JP-BOEHRINGER INGELHEIM GMBH, GERMANY-2008-BP-02834NB

PATIENT
  Age: 4 Year
  Sex: Female

DRUGS (10)
  1. MICARDIS [Suspect]
     Indication: PROPHYLAXIS
     Route: 048
     Dates: start: 20070712, end: 20080123
  2. ZADITEN [Concomitant]
     Route: 048
  3. MYSTAN [Concomitant]
     Route: 048
  4. PHENOBARBITAL TAB [Concomitant]
     Route: 048
  5. ALFAROL [Concomitant]
     Route: 048
  6. ONON [Concomitant]
     Route: 048
  7. MIYA BM (CLOSTRIDIUM BUTYRICUM) [Concomitant]
     Route: 048
  8. PULMICORT RESPULES [Concomitant]
     Route: 055
  9. MUCODYNE [Concomitant]
     Route: 048
  10. ELENTAL [Concomitant]
     Route: 048

REACTIONS (2)
  - CONVULSION [None]
  - HYPOGLYCAEMIA [None]
